FAERS Safety Report 4711870-1 (Version None)
Quarter: 2005Q2

REPORT INFORMATION
  Report Type: 
  Country: None (occurrence: None)
  Receive Date: 20050629
  Receipt Date: 20050523
  Transmission Date: 20051028
  Serious: No
  Sender: FDA-Public Use
  Company Number: 05P-163-0301539-00

PATIENT
  Age: 75 Year
  Sex: Female
  Weight: 63.5036 kg

DRUGS (7)
  1. HUMIRA [Suspect]
     Indication: RHEUMATOID ARTHRITIS
     Dosage: 40 MG, 1 IN 2 WK, SUBCUTANEOUS
     Route: 058
     Dates: start: 20030501, end: 20050501
  2. HUMIRA [Suspect]
     Indication: RHEUMATOID ARTHRITIS
     Dosage: 40 MG, 1 IN 2 WK, SUBCUTANEOUS
     Route: 058
     Dates: start: 20050525
  3. PREDNISONE [Concomitant]
  4. CALCIUM GLUCONATE [Concomitant]
  5. VICODIN [Concomitant]
  6. RANITIDINE [Concomitant]
  7. DIAZEPAM [Concomitant]

REACTIONS (3)
  - ARTHRITIS [None]
  - SKIN LACERATION [None]
  - WOUND COMPLICATION [None]
